FAERS Safety Report 25592637 (Version 2)
Quarter: 2025Q3

REPORT INFORMATION
  Report Type: Spontaneous
  Country: US (occurrence: US)
  Receive Date: 20250722
  Receipt Date: 20250727
  Transmission Date: 20251020
  Serious: Yes (Other)
  Sender: SANOFI AVENTIS
  Company Number: US-SA-2025SA203527

PATIENT
  Sex: Male
  Weight: 66.82 kg

DRUGS (2)
  1. DUPIXENT [Suspect]
     Active Substance: DUPILUMAB
     Indication: Pemphigoid
     Route: 058
     Dates: start: 202507, end: 202507
  2. DUPIXENT [Suspect]
     Active Substance: DUPILUMAB
     Dosage: 300 MG, QOW
     Route: 058
     Dates: start: 202507

REACTIONS (12)
  - Pemphigoid [Unknown]
  - Pain [Unknown]
  - Pruritus [Unknown]
  - Blister rupture [Unknown]
  - Skin haemorrhage [Unknown]
  - Condition aggravated [Unknown]
  - Scratch [Unknown]
  - Scab [Unknown]
  - Peripheral swelling [Unknown]
  - Gait disturbance [Unknown]
  - Bone pain [Unknown]
  - Hypersomnia [Unknown]
